FAERS Safety Report 20135230 (Version 2)
Quarter: 2021Q4

REPORT INFORMATION
  Report Type: Spontaneous
  Country: IT (occurrence: None)
  Receive Date: 20211201
  Receipt Date: 20211216
  Transmission Date: 20220303
  Serious: No
  Sender: FDA-Public Use
  Company Number: IT-ROCHE-2968293

PATIENT
  Age: 20 Year
  Sex: Male

DRUGS (1)
  1. OCREVUS [Suspect]
     Active Substance: OCRELIZUMAB
     Indication: Multiple sclerosis
     Route: 065
     Dates: start: 20200225, end: 20211209

REACTIONS (3)
  - Cystitis [Unknown]
  - Hypogammaglobulinaemia [Not Recovered/Not Resolved]
  - SARS-CoV-2 antibody test positive [Unknown]

NARRATIVE: CASE EVENT DATE: 20200902
